FAERS Safety Report 20768895 (Version 9)
Quarter: 2022Q4

REPORT INFORMATION
  Report Type: Report from Study
  Country: GB (occurrence: None)
  Receive Date: 20220429
  Receipt Date: 20221222
  Transmission Date: 20230112
  Serious: Yes (Hospitalization)
  Sender: FDA-Public Use
  Company Number: GB-ROCHE-3086018

PATIENT
  Age: 39 Year
  Sex: Female
  Weight: 63.6 kg

DRUGS (18)
  1. ATEZOLIZUMAB [Suspect]
     Active Substance: ATEZOLIZUMAB
     Indication: HER2 positive breast cancer
     Dosage: ON 20/APR/2022, SHE RECEIVED MOST RECENT DOSE OF ATEZOLIZUMAB PRIOR TO ADVERSE EVENT AND SERIOUS ADV
     Route: 041
     Dates: start: 20211012
  2. ADO-TRASTUZUMAB EMTANSINE [Suspect]
     Active Substance: ADO-TRASTUZUMAB EMTANSINE
     Indication: HER2 positive breast cancer
     Dosage: ON 20/APR/2022, PATIENT RECEIVED TRASTUZUMAB EMTANSINE 250 MG/KG PRIOR TO ADVERSE EVENT AND SERIOUS
     Route: 042
     Dates: start: 20211012
  3. MAGNESIUM GLYCEROPHOSPHATE [Concomitant]
     Active Substance: MAGNESIUM GLYCEROPHOSPHATE
     Indication: Blood magnesium decreased
     Dates: start: 20211123
  4. CALCIUM\CARBOXYMETHYLCELLULOSE\DEVICE\MAGNESIUM\POTASSIUM\SODIUM CL\SO [Concomitant]
     Active Substance: CALCIUM\CARBOXYMETHYLCELLULOSE\DEVICE\MAGNESIUM\POTASSIUM\SODIUM CL\SORBITOL
     Indication: Dry mouth
     Dates: start: 20211214
  5. PALONOSETRON [Concomitant]
     Active Substance: PALONOSETRON
     Indication: Nausea
     Dates: start: 20220328, end: 20220328
  6. PALONOSETRON [Concomitant]
     Active Substance: PALONOSETRON
     Dates: start: 20220420, end: 20220420
  7. PALONOSETRON [Concomitant]
     Active Substance: PALONOSETRON
     Dates: start: 20220531, end: 20220531
  8. PALONOSETRON [Concomitant]
     Active Substance: PALONOSETRON
     Dates: start: 20220630, end: 20220630
  9. PIPERACILLIN SODIUM\TAZOBACTAM SODIUM [Concomitant]
     Active Substance: PIPERACILLIN SODIUM\TAZOBACTAM SODIUM
     Indication: Pneumonia
     Dates: start: 20220401, end: 20220401
  10. GENTAMICIN [Concomitant]
     Active Substance: GENTAMICIN
     Indication: Pneumonia
     Dates: start: 20220401, end: 20220401
  11. PREDNISOLONE [Concomitant]
     Active Substance: PREDNISOLONE
     Indication: Pneumonitis
     Route: 048
     Dates: start: 20220516, end: 20220522
  12. PREDNISOLONE [Concomitant]
     Active Substance: PREDNISOLONE
     Indication: Interstitial lung disease
     Route: 054
     Dates: start: 20220525, end: 20220527
  13. PREDNISOLONE [Concomitant]
     Active Substance: PREDNISOLONE
     Route: 048
     Dates: start: 20220526, end: 20220528
  14. PREDNISOLONE [Concomitant]
     Active Substance: PREDNISOLONE
     Route: 048
     Dates: start: 20220529, end: 20220531
  15. PREDNISOLONE [Concomitant]
     Active Substance: PREDNISOLONE
     Route: 054
     Dates: start: 20220601, end: 20220603
  16. PREDNISOLONE [Concomitant]
     Active Substance: PREDNISOLONE
     Route: 048
     Dates: start: 20220604, end: 20220606
  17. PREDNISOLONE [Concomitant]
     Active Substance: PREDNISOLONE
     Route: 048
     Dates: start: 20221205
  18. POTASSIUM [Concomitant]
     Active Substance: POTASSIUM
     Indication: Hypokalaemia
     Dates: start: 20211123

REACTIONS (1)
  - Pneumonia [Recovered/Resolved]

NARRATIVE: CASE EVENT DATE: 20220425
